FAERS Safety Report 20570412 (Version 1)
Quarter: 2022Q1

REPORT INFORMATION
  Report Type: Spontaneous
  Country: US (occurrence: US)
  Receive Date: 20220309
  Receipt Date: 20220309
  Transmission Date: 20220424
  Serious: No
  Sender: FDA-Public Use
  Company Number: US-TEVA-2022-US-2012745

PATIENT
  Age: 63 Year
  Sex: Female

DRUGS (1)
  1. BUPRENORPHINE [Suspect]
     Active Substance: BUPRENORPHINE
     Indication: Pain
     Dosage: 10 MCG / HR
     Dates: start: 20220221

REACTIONS (2)
  - Drug ineffective [Unknown]
  - Product label confusion [Unknown]

NARRATIVE: CASE EVENT DATE: 20220221
